FAERS Safety Report 8673164 (Version 4)
Quarter: 2012Q4

REPORT INFORMATION
  Report Type: 
  Country: JP (occurrence: JP)
  Receive Date: 20120719
  Receipt Date: 20120919
  Transmission Date: 20130627
  Serious: Yes (Hospitalization)
  Sender: FDA-Public Use
  Company Number: JP-WATSON-2012-11719

PATIENT
  Age: 64 Year
  Sex: Male

DRUGS (16)
  1. RAPAFLO (WATSON LABORATORIES) [Suspect]
     Indication: DYSURIA
     Dosage: 4 mg, daily
     Route: 048
     Dates: start: 20120530, end: 20120626
  2. BAKTAR [Suspect]
     Indication: BRONCHITIS CHRONIC
     Dosage: 1 tab q 2nd day (0.5 Dosage forms)
     Route: 048
     Dates: start: 20110420
  3. BREDININ [Concomitant]
     Indication: RENAL TRANSPLANT
     Dosage: 50 mg, UNK
     Route: 048
     Dates: start: 19881112, end: 20120626
  4. BREDININ [Concomitant]
     Dosage: UNK
     Route: 048
     Dates: end: 2012
  5. PREDONINE [Concomitant]
     Indication: RENAL TRANSPLANT
     Dosage: 5 mg, UNK
     Route: 048
     Dates: start: 19981105
  6. EVIPROSTAT [Concomitant]
     Indication: DYSURIA
     Dosage: 3 Dosage forms
     Route: 048
     Dates: start: 20120501
  7. ISODINE GARGLE [Concomitant]
     Indication: PRODUCT USED FOR UNKNOWN INDICATION
     Dosage: UNK
     Route: 049
  8. ISODINE GARGLE [Concomitant]
     Dosage: UNK
     Route: 049
     Dates: start: 20120529
  9. PL [Concomitant]
     Indication: PRODUCT USED FOR UNKNOWN INDICATION
     Dosage: UNK
     Route: 048
  10. PL [Concomitant]
     Dosage: 2 g, UNK
     Route: 048
     Dates: start: 20120529, end: 20120604
  11. IMURAN                             /00001501/ [Concomitant]
     Indication: RENAL TRANSPLANT
     Dosage: 50 mg, UNK
     Route: 048
     Dates: end: 20120626
  12. SANDIMMUN [Concomitant]
     Indication: RENAL TRANSPLANT
     Dosage: 125 mg, UNK
     Route: 048
  13. NATRIX [Concomitant]
     Indication: HYPERTENSION
     Dosage: 1 mg, UNK
     Route: 048
  14. URINORM [Concomitant]
     Indication: HYPERURICAEMIA
     Dosage: 50 mg, UNK
     Route: 048
  15. ADALAT [Concomitant]
     Indication: HYPERTENSION
     Dosage: 20 mg, UNK
     Route: 048
  16. KOLANTYL                           /00130401/ [Concomitant]
     Indication: GASTRITIS
     Dosage: 2 Gram, UNK
     Route: 048

REACTIONS (1)
  - Neutropenia [Recovering/Resolving]
